FAERS Safety Report 5179780-6 (Version None)
Quarter: 2006Q4

REPORT INFORMATION
  Report Type: 
  Country: None (occurrence: None)
  Receive Date: 20061211
  Receipt Date: 20061204
  Transmission Date: 20070319
  Serious: Yes (Death)
  Sender: FDA-Public Use
  Company Number: HQWYE224104DEC06

PATIENT
  Age: 19 Year
  Sex: Male

DRUGS (2)
  1. CORDARONE [Suspect]
     Indication: CARDIOMYOPATHY
     Dosage: 150 MG BOLUS
     Route: 040
     Dates: start: 20060901, end: 20060901
  2. CORDARONE [Suspect]
     Indication: SINUS TACHYCARDIA
     Dosage: 150 MG BOLUS
     Route: 040
     Dates: start: 20060901, end: 20060901

REACTIONS (2)
  - DISEASE PROGRESSION [None]
  - VENTRICULAR FIBRILLATION [None]
